FAERS Safety Report 20546415 (Version 5)
Quarter: 2022Q3

REPORT INFORMATION
  Report Type: Report from Study
  Country: US (occurrence: US)
  Receive Date: 20220303
  Receipt Date: 20220626
  Transmission Date: 20221026
  Serious: No
  Sender: FDA-Public Use
  Company Number: US-NOVARTISTESTPH-NVSC2022US050744

PATIENT
  Sex: Female

DRUGS (2)
  1. COSENTYX [Suspect]
     Active Substance: SECUKINUMAB
     Indication: Ankylosing spondylitis
     Dosage: UNK
     Route: 058
  2. COSENTYX [Suspect]
     Active Substance: SECUKINUMAB
     Dosage: UNK (ON 23 APR)
     Route: 058

REACTIONS (5)
  - Pigmentation disorder [Unknown]
  - Rash pruritic [Unknown]
  - Pustule [Unknown]
  - Injection site reaction [Unknown]
  - Drug ineffective [Unknown]
